FAERS Safety Report 7927689-4 (Version None)
Quarter: 2011Q4

REPORT INFORMATION
  Report Type: 
  Country: None (occurrence: None)
  Receive Date: 20111118
  Receipt Date: 20111107
  Transmission Date: 20120403
  Serious: Yes (Hospitalization)
  Sender: FDA-Public Use
  Company Number: JP-ACTELION-A-CH2011-46886

PATIENT
  Sex: Female
  Weight: 50 kg

DRUGS (9)
  1. IMATINIB MESYLATE [Suspect]
     Dosage: UNK
     Dates: start: 20091130
  2. EPOPROSTENOL SODIUM [Concomitant]
  3. NIFEDIPINE [Concomitant]
  4. OXYGEN [Concomitant]
  5. TRACLEER [Suspect]
     Indication: PULMONARY ARTERIAL HYPERTENSION
     Dosage: 125 MG, BID
     Route: 048
     Dates: start: 20090518, end: 20091130
  6. TRACLEER [Suspect]
     Dosage: 62.5 MG, BID
     Route: 048
     Dates: start: 20090420, end: 20090517
  7. FUROSEMIDE [Concomitant]
  8. BERAPROST SODIUM [Concomitant]
  9. IMATINIB MESYLATE [Suspect]
     Dosage: UNK
     Dates: start: 20091022, end: 20091129

REACTIONS (3)
  - HEPATIC FUNCTION ABNORMAL [None]
  - ALANINE AMINOTRANSFERASE INCREASED [None]
  - ASPARTATE AMINOTRANSFERASE INCREASED [None]
